FAERS Safety Report 11185187 (Version 2)
Quarter: 2015Q3

REPORT INFORMATION
  Report Type: Spontaneous
  Country: FR (occurrence: FR)
  Receive Date: 20150612
  Receipt Date: 20150817
  Transmission Date: 20151125
  Serious: No
  Sender: FDA-Public Use
  Company Number: FR-009507513-1506FRA006422

PATIENT
  Age: 55 Year
  Sex: Female
  Weight: 54 kg

DRUGS (4)
  1. FLUXETIL [Concomitant]
     Indication: ANKYLOSING SPONDYLITIS
     Dosage: UNK
  2. OMEPRAZOLE. [Concomitant]
     Active Substance: OMEPRAZOLE
     Indication: ABDOMINAL PAIN
     Dosage: UNK
  3. AERIUS [Suspect]
     Active Substance: DESLORATADINE
     Indication: SKIN REACTION
     Dosage: UNK
     Route: 048
     Dates: start: 20150601, end: 20150606
  4. SIMPONI [Concomitant]
     Active Substance: GOLIMUMAB
     Indication: ANKYLOSING SPONDYLITIS
     Dosage: STRENGTH: 50 MG, FREQUENCY: 1 INJECTION WEEKLY
     Route: 058
     Dates: start: 20150328, end: 20150514

REACTIONS (1)
  - Off label use [Unknown]

NARRATIVE: CASE EVENT DATE: 20150601
